FAERS Safety Report 20559971 (Version 1)
Quarter: 2022Q1

REPORT INFORMATION
  Report Type: Spontaneous
  Country: US (occurrence: None)
  Receive Date: 20220307
  Receipt Date: 20220307
  Transmission Date: 20220423
  Serious: Yes (Life-Threatening, Hospitalization)
  Sender: FDA-Public Use
  Company Number: None

PATIENT
  Age: 63 Year
  Sex: Male

DRUGS (2)
  1. RIVAROXABAN [Suspect]
     Active Substance: RIVAROXABAN
     Indication: Deep vein thrombosis
     Dosage: FREQUENCY : DAILY;?
     Route: 048
     Dates: start: 20220216, end: 20220226
  2. ASPIRIN [Suspect]
     Active Substance: ASPIRIN
     Indication: Cerebrovascular accident
     Dosage: FREQUENCY : DAILY;?
     Route: 048
     Dates: start: 20220118, end: 20220226

REACTIONS (17)
  - Cerebral haemorrhage [None]
  - Cerebral infarction [None]
  - Pelvic venous thrombosis [None]
  - Seizure [None]
  - Pulmonary mass [None]
  - Sinus arrhythmia [None]
  - COVID-19 [None]
  - Treatment noncompliance [None]
  - Myalgia [None]
  - Arthralgia [None]
  - Diabetic ketoacidosis [None]
  - Diabetes mellitus [None]
  - Arthralgia [None]
  - Laboratory test abnormal [None]
  - Oedema [None]
  - Low density lipoprotein increased [None]
  - Non-high-density lipoprotein cholesterol increased [None]

NARRATIVE: CASE EVENT DATE: 20220226
